FAERS Safety Report 4559561-4 (Version None)
Quarter: 2005Q1

REPORT INFORMATION
  Report Type: 
  Country: None (occurrence: None)
  Receive Date: 20050124
  Receipt Date: 20050110
  Transmission Date: 20050727
  Serious: Yes (Death)
  Sender: FDA-Public Use
  Company Number: US-JNJFOC-20041100862

PATIENT
  Sex: Male

DRUGS (4)
  1. REMICADE [Suspect]
     Indication: RHEUMATOID ARTHRITIS
     Route: 042
  2. METHOTREXATE [Concomitant]
  3. FOLIC ACID [Concomitant]
  4. PLAQUENIL [Concomitant]

REACTIONS (11)
  - ASTHENIA [None]
  - CEREBROVASCULAR ACCIDENT [None]
  - CHILLS [None]
  - EAR PAIN [None]
  - FATIGUE [None]
  - HEADACHE [None]
  - HYPERHIDROSIS [None]
  - INSOMNIA [None]
  - PAIN IN JAW [None]
  - PYREXIA [None]
  - VOMITING [None]
